APPROVED DRUG PRODUCT: PIROXICAM
Active Ingredient: PIROXICAM
Strength: 10MG
Dosage Form/Route: CAPSULE;ORAL
Application: A074460 | Product #001
Applicant: WATSON LABORATORIES INC
Approved: Sep 29, 1995 | RLD: No | RS: No | Type: DISCN